FAERS Safety Report 12175150 (Version 1)
Quarter: 2016Q1

REPORT INFORMATION
  Report Type: Report from Study
  Country: US (occurrence: US)
  Receive Date: 20160314
  Receipt Date: 20160314
  Transmission Date: 20160526
  Serious: Yes (Other)
  Sender: FDA-Public Use
  Company Number: US-SUN PHARMACEUTICAL INDUSTRIES LTD-2016US-113009

PATIENT
  Age: 17 Year
  Sex: Female

DRUGS (1)
  1. TOPIRAMATE. [Suspect]
     Active Substance: TOPIRAMATE
     Indication: HEADACHE
     Dosage: 50 MG, DAILY
     Route: 065

REACTIONS (9)
  - Dizziness [Unknown]
  - Multiple fractures [Unknown]
  - Bone density abnormal [Unknown]
  - Self-induced vomiting [Unknown]
  - Temperature intolerance [Unknown]
  - Weight decreased [Unknown]
  - Hypophagia [Unknown]
  - Nausea [Unknown]
  - Oligomenorrhoea [Unknown]
